FAERS Safety Report 16143715 (Version 2)
Quarter: 2019Q2

REPORT INFORMATION
  Report Type: Spontaneous
  Country: CA (occurrence: CA)
  Receive Date: 20190401
  Receipt Date: 20190418
  Transmission Date: 20190711
  Serious: Yes (Other)
  Sender: FDA-Public Use
  Company Number: CA-PFIZER INC-2019130901

PATIENT
  Sex: Female

DRUGS (1)
  1. DEPO-PROVERA [Suspect]
     Active Substance: MEDROXYPROGESTERONE ACETATE
     Dosage: 150 MG (1 ML OF 150 MG/ML), UNK
     Route: 030
     Dates: start: 2003, end: 200602

REACTIONS (5)
  - Osteopenia [Unknown]
  - Stress fracture [Unknown]
  - Mood swings [Unknown]
  - Amenorrhoea [Unknown]
  - Metrorrhagia [Unknown]
